FAERS Safety Report 13484284 (Version 1)
Quarter: 2017Q2

REPORT INFORMATION
  Report Type: Spontaneous
  Country: None (occurrence: GB)
  Receive Date: 20170426
  Receipt Date: 20170426
  Transmission Date: 20170830
  Serious: Yes (Life-Threatening, Hospitalization)
  Sender: FDA-Public Use
  Company Number: GB-ALSI-201700127

PATIENT
  Age: 6 Decade
  Sex: Female

DRUGS (1)
  1. OXYGEN MEDICINAL [Suspect]
     Active Substance: OXYGEN
     Indication: PRODUCT USED FOR UNKNOWN INDICATION
     Route: 055

REACTIONS (3)
  - Intentional product misuse [Not Recovered/Not Resolved]
  - Accident [Not Recovered/Not Resolved]
  - Thermal burn [Not Recovered/Not Resolved]
